FAERS Safety Report 25915301 (Version 1)
Quarter: 2025Q4

REPORT INFORMATION
  Report Type: Spontaneous
  Country: US (occurrence: US)
  Receive Date: 20251013
  Receipt Date: 20251013
  Transmission Date: 20260118
  Serious: No
  Sender: PADAGIS
  Company Number: US-PADAGIS-2025PAD01243

PATIENT

DRUGS (2)
  1. EVAMIST [Suspect]
     Active Substance: ESTRADIOL
     Indication: Product used for unknown indication
     Dosage: ONE SPRAY A DAY INTO THE ARM
     Route: 062
     Dates: start: 202501
  2. EVAMIST [Suspect]
     Active Substance: ESTRADIOL
     Dosage: ONE SPRAY A DAY INTO THE ARM
     Route: 062
     Dates: start: 20250910

REACTIONS (3)
  - Breast tenderness [Recovered/Resolved]
  - Product use issue [Unknown]
  - Product quality issue [Unknown]

NARRATIVE: CASE EVENT DATE: 20250101
